FAERS Safety Report 13789389 (Version 2)
Quarter: 2017Q4

REPORT INFORMATION
  Report Type: Spontaneous
  Country: US (occurrence: US)
  Receive Date: 20170725
  Receipt Date: 20171205
  Transmission Date: 20180320
  Serious: No
  Sender: FDA-Public Use
  Company Number: US-ASTRAZENECA-2017SE74680

PATIENT
  Age: 663 Month
  Sex: Female
  Weight: 65.8 kg

DRUGS (10)
  1. VITAMINS NOS [Concomitant]
     Active Substance: VITAMINS
     Route: 065
  2. PULMICORT TURBUHALER [Suspect]
     Active Substance: BUDESONIDE
     Indication: ASTHMA
     Dosage: 90 UG ONE PUFF, TWO TIMES A DAY
     Route: 055
     Dates: start: 20171110
  3. ATIVAN [Concomitant]
     Active Substance: LORAZEPAM
     Indication: ANXIETY
     Route: 065
  4. VITAMIN D3 [Concomitant]
     Active Substance: CHOLECALCIFEROL
     Route: 048
  5. VITAMINS NOS [Concomitant]
     Active Substance: VITAMINS
  6. PEPCID [Concomitant]
     Active Substance: FAMOTIDINE
     Indication: GASTROOESOPHAGEAL REFLUX DISEASE
     Route: 065
     Dates: start: 2013
  7. PEPCID [Concomitant]
     Active Substance: FAMOTIDINE
     Indication: DYSPEPSIA
     Route: 065
     Dates: start: 2013
  8. BABY ASPIRIN [Concomitant]
     Active Substance: ASPIRIN
     Route: 048
  9. SYMBICORT [Suspect]
     Active Substance: BUDESONIDE\FORMOTEROL FUMARATE DIHYDRATE
     Indication: ASTHMA
     Dosage: 80/4.5 MCG, 2 INHALATIONS TWICE A DAY
     Route: 055
     Dates: start: 201707
  10. PEPCID [Concomitant]
     Active Substance: FAMOTIDINE
     Indication: DYSPEPSIA
     Route: 065
     Dates: start: 2013

REACTIONS (15)
  - Lung disorder [Unknown]
  - Hypersensitivity [Unknown]
  - Wrong technique in product usage process [Unknown]
  - Asthma [Unknown]
  - Back pain [Unknown]
  - Intentional product misuse [Recovered/Resolved]
  - Anxiety [Unknown]
  - Musculoskeletal chest pain [Unknown]
  - Head discomfort [Unknown]
  - Stress [Unknown]
  - Off label use [Unknown]
  - Pain [Unknown]
  - Sinus disorder [Unknown]
  - Dyspnoea [Unknown]
  - Pulmonary pain [Unknown]

NARRATIVE: CASE EVENT DATE: 201707
